FAERS Safety Report 5494346-6 (Version None)
Quarter: 2007Q4

REPORT INFORMATION
  Report Type: 
  Country: None (occurrence: None)
  Receive Date: 20071015
  Receipt Date: 20060904
  Transmission Date: 20080405
  Serious: No
  Sender: FDA-Public Use
  Company Number: S06-USA-01165-01

PATIENT
  Age: 49 Year
  Sex: Female
  Weight: 102.5129 kg

DRUGS (6)
  1. LEXAPRO [Suspect]
     Indication: DEPRESSION
     Dosage: 20 MG QD PO
     Route: 048
     Dates: start: 20040303, end: 20060301
  2. LEXAPRO [Suspect]
     Indication: DEPRESSION
     Dosage: 20 MG QD PO
     Route: 048
     Dates: start: 20060301, end: 20060301
  3. LEXAPRO [Suspect]
     Indication: DEPRESSION
     Dosage: 10 MG QD PO
     Route: 048
     Dates: start: 20040209, end: 20040302
  4. ACTOS [Concomitant]
  5. BENICAR [Concomitant]
  6. COUMADIN [Concomitant]

REACTIONS (1)
  - ATRIAL FIBRILLATION [None]
